FAERS Safety Report 9615032 (Version 1)
Quarter: 2013Q4

REPORT INFORMATION
  Report Type: Spontaneous
  Country: US (occurrence: US)
  Receive Date: 20131011
  Receipt Date: 20131011
  Transmission Date: 20140711
  Serious: No
  Sender: FDA-Public Use
  Company Number: US-PFIZER INC-2013289625

PATIENT
  Sex: Female

DRUGS (9)
  1. DILANTIN-125 [Suspect]
     Dosage: UNK
  2. ERYTHROMYCIN [Suspect]
     Dosage: UNK
  3. RIFAMPIN [Suspect]
     Dosage: UNK
  4. MINOCIN [Suspect]
     Dosage: UNK
  5. MYSOLINE [Suspect]
     Dosage: UNK
  6. TEGRETOL [Suspect]
     Dosage: UNK
  7. CODEINE [Suspect]
     Dosage: UNK
  8. PERCOCET [Suspect]
     Dosage: UNK
  9. TOPAMAX [Suspect]
     Dosage: UNK

REACTIONS (1)
  - Drug hypersensitivity [Unknown]
